FAERS Safety Report 4854156-7 (Version None)
Quarter: 2005Q4

REPORT INFORMATION
  Report Type: 
  Country: None (occurrence: None)
  Receive Date: 20051213
  Receipt Date: 20051129
  Transmission Date: 20060501
  Serious: Yes (Hospitalization, Other)
  Sender: FDA-Public Use
  Company Number: A-US2005-10970

PATIENT
  Age: 56 Year
  Sex: Female
  Weight: 46.3 kg

DRUGS (11)
  1. TRACLEER [Suspect]
     Indication: PULMONARY HYPERTENSION
     Dosage: 125MG, BID, ORAL; SEE IMAGE
     Route: 048
     Dates: start: 20040901, end: 20041101
  2. TRACLEER [Suspect]
     Indication: PULMONARY HYPERTENSION
     Dosage: 125MG, BID, ORAL; SEE IMAGE
     Route: 048
     Dates: start: 20041101, end: 20051107
  3. EFFEXOR [Suspect]
  4. ACTOS [Suspect]
  5. ALBUTEROL [Concomitant]
  6. COUMADIN [Concomitant]
  7. SPIRONOLACTONE [Concomitant]
  8. LASIX [Concomitant]
  9. SALMETEROL [Concomitant]
  10. SPIRIVA [Concomitant]
  11. OXYGEN [Concomitant]

REACTIONS (16)
  - ASPIRATION [None]
  - CHRONIC OBSTRUCTIVE PULMONARY DISEASE [None]
  - CONDITION AGGRAVATED [None]
  - EMPHYSEMA [None]
  - FLUSHING [None]
  - HAEMATOCRIT INCREASED [None]
  - HAEMOPTYSIS [None]
  - HEADACHE [None]
  - HYPERGLYCAEMIA [None]
  - HYPERTENSION [None]
  - LEUKOPENIA [None]
  - LIVER FUNCTION TEST ABNORMAL [None]
  - PLEURITIC PAIN [None]
  - PNEUMONIA [None]
  - RESPIRATORY TRACT INFECTION [None]
  - THROAT IRRITATION [None]
